FAERS Safety Report 25473755 (Version 1)
Quarter: 2025Q2

REPORT INFORMATION
  Report Type: Spontaneous
  Country: GB (occurrence: GB)
  Receive Date: 20250624
  Receipt Date: 20250624
  Transmission Date: 20250717
  Serious: Yes (Hospitalization, Other)
  Sender: DAIICHI
  Company Number: GB-DSJP-DS-2025-148255-GBAA

PATIENT
  Age: 54 Year
  Sex: Male

DRUGS (8)
  1. QUIZARTINIB [Suspect]
     Active Substance: QUIZARTINIB
     Indication: Acute myeloid leukaemia
     Dosage: 17.7 MG, QD DAILY (INPATIENT)
     Route: 065
  2. QUIZARTINIB [Suspect]
     Active Substance: QUIZARTINIB
     Dosage: 17.7 MG, QD DAILY (AMBULATORY)
     Route: 065
  3. QUIZARTINIB [Suspect]
     Active Substance: QUIZARTINIB
     Dosage: 53MG DAILY AFTER 2 WEEKS
     Route: 065
  4. CYTARABINE\DAUNORUBICIN [Concomitant]
     Active Substance: CYTARABINE\DAUNORUBICIN
     Indication: Acute myeloid leukaemia
     Route: 065
  5. ACYCLOVIR [Concomitant]
     Active Substance: ACYCLOVIR
     Indication: Prophylaxis
     Route: 065
  6. CIPROFLOXACIN [Concomitant]
     Active Substance: CIPROFLOXACIN
     Indication: Prophylaxis
     Route: 065
  7. POSACONAZOLE [Concomitant]
     Active Substance: POSACONAZOLE
     Indication: Prophylaxis
     Route: 065
  8. VYXEOS LIPOSOMAL [CYTARABINE;DAUNORUBICIN] [Concomitant]
     Indication: Product used for unknown indication
     Route: 065

REACTIONS (1)
  - Neutropenic infection [Recovered/Resolved]
